FAERS Safety Report 5811679-1 (Version None)
Quarter: 2008Q3

REPORT INFORMATION
  Report Type: 
  Country: None (occurrence: None)
  Receive Date: 20080714
  Receipt Date: 20080703
  Transmission Date: 20090109
  Serious: Yes (Hospitalization)
  Sender: FDA-Public Use
  Company Number: GXKR2008CH06274

PATIENT
  Age: 89 Year
  Sex: Female
  Weight: 44 kg

DRUGS (10)
  1. METFIN (NGX) (METFORMIN) FILM-COATED TABLET, 500MG [Suspect]
     Indication: TYPE 2 DIABETES MELLITUS
     Dosage: 500 MG, QD, ORAL
     Route: 048
     Dates: end: 20080614
  2. DIAMICRON (GLICLAZIDE) TABLET, 80MG [Suspect]
     Indication: TYPE 2 DIABETES MELLITUS
     Dosage: 80 MG, OD, ORAL
     Route: 048
     Dates: end: 20080614
  3. ASPIRIN [Concomitant]
  4. NITRODERM (GLYCERYL TRINITRATE) PATCH, 50 MG [Concomitant]
  5. HYDROCHLOROTHIAZIDE W/IRBESARTAN (HYDROCHLOROTHIAZIDE, IRBESARTAN) [Concomitant]
  6. BELOC (METOPROLOL TARTRATE) TABLET [Concomitant]
  7. CRESTOR (ROSUVASTATIN CALCIUM) FILM-COATED TABLET [Concomitant]
  8. ELTROXIN (LEVOTHYROXINE SODIUM) TABLET, 50 UG [Concomitant]
  9. ARICEPT (DONEPEZIL HYDROCHLORIDE) FILM-COATED TABLET, 5 MG [Concomitant]
  10. OXAZEPAM [Concomitant]

REACTIONS (9)
  - DISTURBANCE IN ATTENTION [None]
  - DIZZINESS [None]
  - FALL [None]
  - HAEMATOMA [None]
  - HYPERTENSIVE CRISIS [None]
  - HYPOGLYCAEMIA [None]
  - MEDICATION ERROR [None]
  - PALPITATIONS [None]
  - RENAL FAILURE [None]
